FAERS Safety Report 25308243 (Version 1)
Quarter: 2025Q2

REPORT INFORMATION
  Report Type: Report from Study
  Country: US (occurrence: US)
  Receive Date: 20250513
  Receipt Date: 20250513
  Transmission Date: 20250717
  Serious: Yes (Other)
  Sender: MALLINCKRODT
  Company Number: US-MALLINCKRODT-MNK202500295

PATIENT
  Age: 80 Year
  Sex: Female

DRUGS (2)
  1. CORTICOTROPIN [Suspect]
     Active Substance: CORTICOTROPIN
     Indication: Conjunctivitis
  2. CORTICOTROPIN [Suspect]
     Active Substance: CORTICOTROPIN

REACTIONS (9)
  - SARS-CoV-2 test positive [Recovering/Resolving]
  - Conjunctivitis [Unknown]
  - Condition aggravated [Unknown]
  - Abdominal operation [Unknown]
  - Keratitis [Unknown]
  - Cough [Unknown]
  - Nasal congestion [Unknown]
  - Injection site bruising [Recovered/Resolved]
  - Product dose omission issue [Unknown]

NARRATIVE: CASE EVENT DATE: 20250101
